FAERS Safety Report 12937811 (Version 1)
Quarter: 2016Q4

REPORT INFORMATION
  Report Type: Spontaneous
  Country: US (occurrence: US)
  Receive Date: 20161114
  Receipt Date: 20161114
  Transmission Date: 20170207
  Serious: No
  Sender: FDA-Public Use
  Company Number: US-GILEAD-2016-0243122

PATIENT
  Sex: Female

DRUGS (1)
  1. RANEXA [Suspect]
     Active Substance: RANOLAZINE
     Indication: PRODUCT USED FOR UNKNOWN INDICATION
     Route: 065

REACTIONS (5)
  - Pruritus [Unknown]
  - Intentional underdose [Unknown]
  - Wrong technique in product usage process [Unknown]
  - Arthralgia [Unknown]
  - Pain [Unknown]
